FAERS Safety Report 12632528 (Version 6)
Quarter: 2016Q4

REPORT INFORMATION
  Report Type: Report from Study
  Country: BR (occurrence: BR)
  Receive Date: 20160808
  Receipt Date: 20161128
  Transmission Date: 20170207
  Serious: Yes (Other)
  Sender: FDA-Public Use
  Company Number: PHHY2016BR041495

PATIENT
  Sex: Female
  Weight: 54 kg

DRUGS (8)
  1. EXJADE [Suspect]
     Active Substance: DEFERASIROX
     Dosage: 1 DF (500 MG) (10 MG/KG), QD
     Route: 048
  2. EXJADE [Suspect]
     Active Substance: DEFERASIROX
     Indication: SICKLE CELL ANAEMIA
     Dosage: 15 MG/KG, (1 DF OF 500 MG AND 1 DF OF 250 MG) QD
     Route: 048
  3. EXJADE [Suspect]
     Active Substance: DEFERASIROX
     Dosage: 1000 MG, QD (2 DISPERSIBLE TABLETS OF 500 MG DAILY)
     Route: 048
  4. EXJADE [Suspect]
     Active Substance: DEFERASIROX
     Dosage: 1000 MG (2 DF OF 500 MG, 15 MG/KG), QD
     Route: 048
  5. EXJADE [Suspect]
     Active Substance: DEFERASIROX
     Dosage: 20 MG/KG, QD (2 TABLETS OF 500 AT THE SAME TIME)
     Route: 048
  6. EXJADE [Suspect]
     Active Substance: DEFERASIROX
     Indication: CONGENITAL APLASTIC ANAEMIA
     Dosage: 10 MG/KG, (1 DF OF 500 MG) QD
     Route: 048
  7. EXJADE [Suspect]
     Active Substance: DEFERASIROX
     Dosage: 1000 MG, QD  (2 DISPERSIBLE TABLETS OF 500 MG ORALLY)
     Route: 048
  8. EXJADE [Suspect]
     Active Substance: DEFERASIROX
     Dosage: 1 DF, BID (ONE TABLET OF 500 IN THE MORNING AND ANOTHER AT NIGHT)
     Route: 048

REACTIONS (15)
  - Haemorrhage [Unknown]
  - Hordeolum [Unknown]
  - Faeces soft [Unknown]
  - Nervousness [Unknown]
  - Rash [Unknown]
  - Abdominal pain upper [Unknown]
  - Neoplasm [Unknown]
  - Vomiting [Unknown]
  - Skin discolouration [Unknown]
  - Drug intolerance [Unknown]
  - Skin mass [Unknown]
  - Mass [Unknown]
  - Mental disorder [Unknown]
  - Wound [Unknown]
  - Blood iron increased [Recovering/Resolving]
